FAERS Safety Report 4614727-X (Version None)
Quarter: 2005Q2

REPORT INFORMATION
  Report Type: 
  Country: None (occurrence: None)
  Receive Date: 20050310
  Receipt Date: 20041202
  Transmission Date: 20051028
  Serious: Yes (Hospitalization)
  Sender: FDA-Public Use
  Company Number: A03200404065

PATIENT
  Sex: Female

DRUGS (4)
  1. ELOXATIN [Suspect]
     Indication: CARCINOID TUMOUR OF THE SMALL BOWEL
     Dosage: INTRAVENOUS NOS
     Route: 042
     Dates: start: 20041201, end: 20041201
  2. ELOXATIN [Suspect]
     Indication: METASTASIS
     Dosage: INTRAVENOUS NOS
     Route: 042
     Dates: start: 20041201, end: 20041201
  3. FLUOROURACIL [Concomitant]
  4. LEUCOVORIN [Concomitant]

REACTIONS (2)
  - GASTROINTESTINAL HAEMORRHAGE [None]
  - THROMBOCYTOPENIA [None]
